FAERS Safety Report 17184683 (Version 1)
Quarter: 2019Q4

REPORT INFORMATION
  Report Type: Spontaneous
  Country: US (occurrence: US)
  Receive Date: 20191127
  Receipt Date: 20191127
  Transmission Date: 20200122
  Serious: Yes (Hospitalization)
  Sender: FDA-Public Use
  Company Number: None

PATIENT
  Age: 70 Year
  Sex: Female

DRUGS (1)
  1. HUMIRA [Suspect]
     Active Substance: ADALIMUMAB
     Indication: RHEUMATOID ARTHRITIS
     Dosage: ?          OTHER FREQUENCY:EVERY 2 WEEKS ;?
     Route: 058
     Dates: start: 20190515, end: 20191122

REACTIONS (6)
  - Peripheral swelling [None]
  - Vomiting [None]
  - Rash [None]
  - Nausea [None]
  - Dizziness [None]
  - Body temperature increased [None]

NARRATIVE: CASE EVENT DATE: 20191122
